FAERS Safety Report 13668659 (Version 1)
Quarter: 2017Q2

REPORT INFORMATION
  Report Type: Spontaneous
  Country: US (occurrence: US)
  Receive Date: 20170620
  Receipt Date: 20170620
  Transmission Date: 20170830
  Serious: Yes (Other)
  Sender: FDA-Public Use
  Company Number: None

PATIENT
  Age: 53 Year
  Sex: Female
  Weight: 88.5 kg

DRUGS (1)
  1. PACLITAXEL 300 MG TEVA [Suspect]
     Active Substance: PACLITAXEL
     Indication: ENDOMETRIAL CANCER
     Dosage: 335 MG Q 3 WEEK IV
     Route: 042
     Dates: start: 20170517, end: 20170607

REACTIONS (7)
  - Flushing [None]
  - Abdominal pain [None]
  - Dyspepsia [None]
  - Palpitations [None]
  - Back pain [None]
  - Feeling hot [None]
  - Eructation [None]

NARRATIVE: CASE EVENT DATE: 20170607
